FAERS Safety Report 18502330 (Version 1)
Quarter: 2020Q4

REPORT INFORMATION
  Report Type: Other
  Country: US (occurrence: US)
  Receive Date: 20201113
  Receipt Date: 20201113
  Transmission Date: 20210114
  Serious: No
  Sender: FDA-Public Use
  Company Number: US-LEADIANT BIOSCIENCES INC-2020STPI000343

PATIENT
  Sex: Female

DRUGS (10)
  1. SIROLIMUS. [Concomitant]
     Active Substance: SIROLIMUS
  2. HUMALOG [Concomitant]
     Active Substance: INSULIN LISPRO
  3. PREDNISONE. [Concomitant]
     Active Substance: PREDNISONE
  4. CELLCEPT [Concomitant]
     Active Substance: MYCOPHENOLATE MOFETIL\MYCOPHENOLATE MOFETIL HYDROCHLORIDE
  5. MYCOPHENOLATE [Concomitant]
     Active Substance: MYCOPHENOLIC ACID
  6. GLIZIDE [GLICLAZIDE] [Concomitant]
  7. CYSTARAN [Suspect]
     Active Substance: CYSTEAMINE HYDROCHLORIDE
     Indication: CYSTINOSIS
     Dosage: ONE DROP EVERY HOUR
     Route: 047
     Dates: start: 20160503
  8. ROSUVASTATIN. [Concomitant]
     Active Substance: ROSUVASTATIN
  9. SYNTHROID [Concomitant]
     Active Substance: LEVOTHYROXINE SODIUM
  10. LEVOTHYROXIN [Concomitant]
     Active Substance: LEVOTHYROXINE

REACTIONS (2)
  - Thermal burns of eye [Recovered/Resolved]
  - Eye pain [Recovered/Resolved]
